FAERS Safety Report 8456107-5 (Version None)
Quarter: 2012Q2

REPORT INFORMATION
  Report Type: 
  Country: None (occurrence: None)
  Receive Date: 20120621
  Receipt Date: 20120618
  Transmission Date: 20120825
  Serious: Yes (Other)
  Sender: FDA-Public Use
  Company Number: PHEH2012US008976

PATIENT
  Sex: Male

DRUGS (5)
  1. VALTURNA [Suspect]
     Indication: HYPERTENSION
     Dosage: 1 DF (300 MG ALIS AND 320 MG VALS), QD
     Dates: start: 20110309, end: 20120316
  2. ALLOPURINOL [Concomitant]
     Indication: HYPERURICAEMIA
     Dosage: 200 MG, QD
     Route: 048
     Dates: start: 20110126
  3. SIMVASTATIN [Concomitant]
     Indication: HYPERLIPIDAEMIA
     Dosage: 20 MG, QD
     Route: 048
     Dates: start: 20111205
  4. DILTIAZEM HYDROCHOLORIDE [Concomitant]
     Indication: HYPERTENSION
     Dosage: 240 MG, QD
     Route: 048
  5. HYDROCHLOROTHIAZIDE [Concomitant]
     Indication: HYPERTENSION
     Dosage: 125 MG, QD
     Route: 048
     Dates: start: 20110421

REACTIONS (4)
  - ABDOMINAL PAIN [None]
  - RENAL DISORDER [None]
  - DIABETES MELLITUS [None]
  - FLANK PAIN [None]
